FAERS Safety Report 8433617-8 (Version None)
Quarter: 2012Q2

REPORT INFORMATION
  Report Type: 
  Country: None (occurrence: None)
  Receive Date: 20120613
  Receipt Date: 20120607
  Transmission Date: 20120825
  Serious: No
  Sender: FDA-Public Use
  Company Number: US-PFIZER INC-2012137664

PATIENT
  Sex: Male
  Weight: 86 kg

DRUGS (6)
  1. LIPITOR [Suspect]
     Indication: BLOOD CHOLESTEROL ABNORMAL
     Dosage: UNK
     Route: 048
  2. LIPITOR [Suspect]
     Indication: HYPERTENSION
     Dosage: 40 MG, DAILY
     Route: 048
     Dates: start: 20120501, end: 20120101
  3. LORATADINE [Concomitant]
     Indication: SINUSITIS
     Dosage: 10 MG, UNK
  4. LORATADINE [Concomitant]
     Indication: HYPERSENSITIVITY
  5. METOPROLOL TARTRATE [Suspect]
     Indication: HYPERTENSION
     Dosage: 50 MG, DAILY
  6. AMLODIPINE BESYLATE [Suspect]
     Indication: HYPERTENSION
     Dosage: 10 MG, DAILY
     Dates: start: 20110101

REACTIONS (2)
  - DEPRESSED MOOD [None]
  - FEELING ABNORMAL [None]
